FAERS Safety Report 6306053-8 (Version None)
Quarter: 2009Q3

REPORT INFORMATION
  Report Type: 
  Country: None (occurrence: None)
  Receive Date: 20090812
  Receipt Date: 20090804
  Transmission Date: 20100115
  Serious: Yes (Hospitalization, Other)
  Sender: FDA-Public Use
  Company Number: US-BAYER-200923913NA

PATIENT
  Age: 27 Year
  Sex: Female
  Weight: 97 kg

DRUGS (5)
  1. MIRENA [Suspect]
     Indication: CONTRACEPTION
     Route: 015
     Dates: start: 20090402, end: 20090509
  2. PEPCID [Concomitant]
  3. DURAGESIC-100 [Concomitant]
     Indication: HEADACHE
     Route: 062
     Dates: start: 20090430
  4. LEVAQUIN [Concomitant]
     Indication: DEPRESSION
  5. ADIPEX [Concomitant]
     Indication: WEIGHT DECREASED

REACTIONS (15)
  - BACK PAIN [None]
  - DEEP VEIN THROMBOSIS [None]
  - DEHYDRATION [None]
  - DRUG ABUSE [None]
  - DYSPNOEA [None]
  - EAR PAIN [None]
  - HEADACHE [None]
  - INTRACRANIAL VENOUS SINUS THROMBOSIS [None]
  - MASTOIDITIS [None]
  - NAUSEA [None]
  - PLEURITIC PAIN [None]
  - PULMONARY EMBOLISM [None]
  - URINARY TRACT INFECTION [None]
  - VOMITING [None]
  - WEIGHT DECREASED [None]
